FAERS Safety Report 15964959 (Version 1)
Quarter: 2019Q1

REPORT INFORMATION
  Report Type: Spontaneous
  Country: IT (occurrence: IT)
  Receive Date: 20190215
  Receipt Date: 20190215
  Transmission Date: 20190418
  Serious: Yes (Other)
  Sender: FDA-Public Use
  Company Number: IT-ACCORD-102627

PATIENT
  Age: 56 Year
  Sex: Female
  Weight: 44 kg

DRUGS (2)
  1. LEVOLEUCOVORIN. [Concomitant]
     Active Substance: LEVOLEUCOVORIN
     Indication: GASTRIC CANCER STAGE IV
     Route: 042
     Dates: start: 20170622, end: 20180608
  2. FLUOROURACIL. [Suspect]
     Active Substance: FLUOROURACIL
     Indication: GASTRIC CANCER STAGE IV
     Dosage: LAST CYCLE OF THERAPY WAS COMPLIED ON 08-JUN-2018.
     Route: 040
     Dates: start: 20170622

REACTIONS (8)
  - Influenza [Recovering/Resolving]
  - Constipation [Recovering/Resolving]
  - Lip swelling [Recovering/Resolving]
  - Bronchitis bacterial [Recovering/Resolving]
  - Cough [Recovering/Resolving]
  - Swollen tongue [Recovering/Resolving]
  - Stomatitis [Recovering/Resolving]
  - Dyspepsia [Recovering/Resolving]

NARRATIVE: CASE EVENT DATE: 20180120
